FAERS Safety Report 4723481-2 (Version None)
Quarter: 2005Q3

REPORT INFORMATION
  Report Type: 
  Country: None (occurrence: None)
  Receive Date: 20050725
  Receipt Date: 20050719
  Transmission Date: 20060218
  Serious: Yes (Life-Threatening)
  Sender: FDA-Public Use
  Company Number: GB-GLAXOSMITHKLINE-B0388188A

PATIENT
  Age: 42 Year
  Sex: Female
  Weight: 81 kg

DRUGS (3)
  1. ZYBAN [Suspect]
     Indication: SMOKING CESSATION THERAPY
     Dosage: 150MG PER DAY
     Route: 048
     Dates: start: 20050628, end: 20050704
  2. ESTRADERM [Concomitant]
     Dosage: 100MCG PER DAY
     Route: 061
     Dates: start: 20020128
  3. DICLOFENAC SODIUM [Concomitant]
     Dosage: 50MG THREE TIMES PER DAY
     Route: 048
     Dates: start: 20050623

REACTIONS (2)
  - PANIC ATTACK [None]
  - SUICIDAL IDEATION [None]
